FAERS Safety Report 5899138-1 (Version None)
Quarter: 2008Q3

REPORT INFORMATION
  Report Type: 
  Country: None (occurrence: None)
  Receive Date: 20080925
  Receipt Date: 20080909
  Transmission Date: 20090109
  Serious: No
  Sender: FDA-Public Use
  Company Number: US-B.I. PHARMACEUTICALS,INC./RIDGEFIELD-2008-BP-14284BP

PATIENT
  Sex: Female

DRUGS (8)
  1. SPIRIVA [Suspect]
     Indication: PULMONARY HYPERTENSION
     Dosage: 18MCG
     Route: 055
     Dates: start: 20070901
  2. ULTRAM [Concomitant]
  3. LEVOTHYROXINE SODIUM [Concomitant]
  4. KLOR-CON [Concomitant]
  5. LISINOPRIL [Concomitant]
     Indication: HYPERTENSION
  6. LIPITOR [Concomitant]
  7. LORAZEPAM [Concomitant]
  8. LYRICA [Concomitant]

REACTIONS (2)
  - DRUG INEFFECTIVE [None]
  - WHEEZING [None]
